FAERS Safety Report 4354959-1 (Version None)
Quarter: 2004Q2

REPORT INFORMATION
  Report Type: 
  Country: None (occurrence: None)
  Receive Date: 20040504
  Receipt Date: 20040420
  Transmission Date: 20050107
  Serious: Yes (Hospitalization)
  Sender: FDA-Public Use
  Company Number: 191537

PATIENT
  Age: 54 Year
  Sex: Female
  Weight: 42.6381 kg

DRUGS (5)
  1. AVONEX [Suspect]
     Indication: MULTIPLE SCLEROSIS
     Dosage: 30 MCG QW IM
     Route: 030
     Dates: start: 20020101, end: 20030801
  2. PLAVIX [Concomitant]
  3. ZOLOFT [Concomitant]
  4. WELLBUTRIN [Concomitant]
  5. ESTRADIOL [Concomitant]

REACTIONS (8)
  - BRADYCARDIA [None]
  - CARDIAC DISORDER [None]
  - INFLUENZA LIKE ILLNESS [None]
  - LOSS OF CONSCIOUSNESS [None]
  - LUMBAR PUNCTURE [None]
  - MEDICATION ERROR [None]
  - PAIN IN EXTREMITY [None]
  - POST PROCEDURAL PAIN [None]
